FAERS Safety Report 8328926-7 (Version None)
Quarter: 2012Q2

REPORT INFORMATION
  Report Type: 
  Country: None (occurrence: None)
  Receive Date: 20120502
  Receipt Date: 20100928
  Transmission Date: 20120825
  Serious: No
  Sender: FDA-Public Use
  Company Number: US-TEVA-2010005177

PATIENT
  Sex: Male
  Weight: 93.07 kg

DRUGS (17)
  1. PRINIVIL [Concomitant]
  2. NIASPAN [Concomitant]
  3. VITAMIN E [Concomitant]
     Dates: start: 19950101
  4. TOPROL-XL [Concomitant]
  5. CO-Q10 [Concomitant]
     Dates: start: 20070101
  6. FISH OIL [Concomitant]
     Dates: start: 20060101
  7. NOVOLOG [Concomitant]
     Dates: start: 20000101
  8. NUVIGIL [Suspect]
     Indication: SLEEP APNOEA SYNDROME
     Dosage: 250 MILLIGRAM;
     Route: 048
     Dates: start: 20100701
  9. ASPIRIN [Concomitant]
     Dates: start: 19900101
  10. PRAVASTATIN [Concomitant]
  11. ENABLEX [Concomitant]
     Dates: start: 20100301
  12. LEVOXYL [Concomitant]
     Dates: start: 19900101
  13. LORAZEPAM [Concomitant]
     Dates: start: 20080101
  14. SINEMET [Concomitant]
     Dates: start: 20070101
  15. PETADOLEX [Concomitant]
     Dates: start: 20050101
  16. EFFEXOR XR [Concomitant]
  17. CELEBREX [Concomitant]

REACTIONS (1)
  - DRUG TOLERANCE [None]
